FAERS Safety Report 6394933-7 (Version None)
Quarter: 2009Q4

REPORT INFORMATION
  Report Type: 
  Country: None (occurrence: None)
  Receive Date: 20091009
  Receipt Date: 20090928
  Transmission Date: 20100525
  Serious: Yes (Hospitalization)
  Sender: FDA-Public Use
  Company Number: FR-PFIZER INC-2009274508

PATIENT
  Age: 76 Year

DRUGS (6)
  1. ZYVOXID [Suspect]
     Dosage: UNK
     Route: 042
     Dates: start: 20090627, end: 20090705
  2. HEPARIN CALCIUM [Suspect]
     Dosage: UNK
     Route: 042
     Dates: start: 20090615, end: 20090707
  3. CLAFORAN [Suspect]
     Dosage: UNK
     Route: 042
     Dates: start: 20090624, end: 20090705
  4. DOBUTAMINE HYDROCHLORIDE [Suspect]
     Dosage: UNK
     Route: 042
     Dates: start: 20090620, end: 20090707
  5. TIAPRIDAL [Suspect]
     Dosage: UNK
     Route: 042
     Dates: start: 20090630, end: 20090704
  6. ORGARAN [Concomitant]

REACTIONS (2)
  - HEPARIN-INDUCED THROMBOCYTOPENIA [None]
  - VENOUS THROMBOSIS [None]
